FAERS Safety Report 25022530 (Version 1)
Quarter: 2025Q1

REPORT INFORMATION
  Report Type: Spontaneous
  Country: DE (occurrence: DE)
  Receive Date: 20250228
  Receipt Date: 20250228
  Transmission Date: 20250408
  Serious: Yes (Life-Threatening, Hospitalization)
  Sender: ROCHE
  Company Number: None

PATIENT
  Age: 25 Year
  Sex: Female
  Weight: 35 kg

DRUGS (4)
  1. TAMIFLU [Suspect]
     Active Substance: OSELTAMIVIR PHOSPHATE
     Indication: Influenza
     Route: 065
     Dates: start: 20250122, end: 20250125
  2. Piperacilline Tazobactam Fresenius [Concomitant]
     Indication: Superinfection bacterial
     Route: 042
     Dates: start: 20250122
  3. Levofloxacin kabi 5mg/ml INF [Concomitant]
     Indication: Superinfection bacterial
     Route: 042
     Dates: start: 20250124
  4. Paracetamol B.Braun 10mg/ml INF [Concomitant]
     Indication: Pain
     Route: 042
     Dates: start: 20250124, end: 20250125

REACTIONS (2)
  - Acute hepatic failure [Not Recovered/Not Resolved]
  - Transaminases increased [Not Recovered/Not Resolved]

NARRATIVE: CASE EVENT DATE: 20250125
